FAERS Safety Report 23340238 (Version 2)
Quarter: 2024Q1

REPORT INFORMATION
  Report Type: Report from Study
  Country: US (occurrence: US)
  Receive Date: 20231227
  Receipt Date: 20240123
  Transmission Date: 20240410
  Serious: Yes (Hospitalization)
  Sender: FDA-Public Use
  Company Number: US-002147023-NVSC2023US273586

PATIENT
  Sex: Female

DRUGS (1)
  1. ENTRESTO [Suspect]
     Active Substance: SACUBITRIL\VALSARTAN
     Indication: Product used for unknown indication
     Dosage: 24 MG (24/26 MG)
     Route: 048
     Dates: start: 202310

REACTIONS (4)
  - Feeling abnormal [Unknown]
  - Fluid retention [Unknown]
  - Nasopharyngitis [Unknown]
  - Drug ineffective [Unknown]
